FAERS Safety Report 21020810 (Version 1)
Quarter: 2022Q2

REPORT INFORMATION
  Report Type: Spontaneous
  Country: CZ (occurrence: CZ)
  Receive Date: 20220629
  Receipt Date: 20220629
  Transmission Date: 20220721
  Serious: Yes (Life-Threatening, Other)
  Sender: FDA-Public Use
  Company Number: CZ-CELLTRION INC.-2022CZ010006

PATIENT

DRUGS (1)
  1. RITUXIMAB [Suspect]
     Active Substance: RITUXIMAB
     Indication: Haemophilia
     Dosage: 375 MG/M2, 4 DOSES AT WEEKLY INTERVALS
     Route: 065

REACTIONS (5)
  - Melaena [Unknown]
  - Haemorrhage [Unknown]
  - Cardiovascular disorder [Unknown]
  - Off label use [Unknown]
  - Off label use [Unknown]
